FAERS Safety Report 4388590-9 (Version None)
Quarter: 2004Q2

REPORT INFORMATION
  Report Type: 
  Country: None (occurrence: None)
  Receive Date: 20040624
  Receipt Date: 20040611
  Transmission Date: 20050107
  Serious: Yes (Other)
  Sender: FDA-Public Use
  Company Number: 2004034105

PATIENT
  Age: 54 Year
  Sex: Male
  Weight: 80 kg

DRUGS (2)
  1. VIAGRA [Suspect]
     Indication: ERECTILE DYSFUNCTION
     Dosage: (100 MG, 1 D), ORAL
     Route: 048
     Dates: start: 20030101, end: 20040101
  2. PERINDOPRIL (PERINDOPRIL) [Concomitant]

REACTIONS (1)
  - VISUAL DISTURBANCE [None]
